FAERS Safety Report 26094779 (Version 1)
Quarter: 2025Q4

REPORT INFORMATION
  Report Type: Spontaneous
  Country: US (occurrence: US)
  Receive Date: 20251126
  Receipt Date: 20251126
  Transmission Date: 20260118
  Serious: No
  Sender: TEVA
  Company Number: US-TEVA-VS-3393174

PATIENT
  Sex: Female

DRUGS (2)
  1. AJOVY [Suspect]
     Active Substance: FREMANEZUMAB-VFRM
     Indication: Migraine
     Route: 065
  2. CLARITIN [Concomitant]
     Active Substance: LORATADINE
     Indication: Product used for unknown indication
     Route: 065

REACTIONS (13)
  - Skin injury [Unknown]
  - Injection site swelling [Unknown]
  - Skin discolouration [Unknown]
  - Injection site reaction [Unknown]
  - Erythema [Unknown]
  - Inflammation [Unknown]
  - Injection site haemorrhage [Unknown]
  - Injection site hypersensitivity [Unknown]
  - Injection site bruising [Unknown]
  - Device delivery system issue [Unknown]
  - Injection site irritation [Unknown]
  - Condition aggravated [Unknown]
  - Complication of device removal [Unknown]
